FAERS Safety Report 18182358 (Version 2)
Quarter: 2021Q2

REPORT INFORMATION
  Report Type: Spontaneous
  Country: US (occurrence: US)
  Receive Date: 20200821
  Receipt Date: 20210415
  Transmission Date: 20210717
  Serious: Yes (Hospitalization, Other)
  Sender: FDA-Public Use
  Company Number: US-ASTRAZENECA-2020SF04395

PATIENT
  Age: 43 Year
  Sex: Female
  Weight: 108.9 kg

DRUGS (48)
  1. PROMETHAZINE [Concomitant]
     Active Substance: PROMETHAZINE HYDROCHLORIDE
  2. HEPARIN [Concomitant]
     Active Substance: HEPARIN SODIUM
  3. TAGAMET [Concomitant]
     Active Substance: CIMETIDINE
  4. PRILOSEC [Suspect]
     Active Substance: OMEPRAZOLE MAGNESIUM
     Indication: GASTROOESOPHAGEAL REFLUX DISEASE
     Dosage: GENERIC
     Route: 065
     Dates: start: 2019
  5. PRILOSEC OTC [Suspect]
     Active Substance: OMEPRAZOLE MAGNESIUM
     Indication: GASTROOESOPHAGEAL REFLUX DISEASE
     Route: 048
     Dates: start: 199501, end: 201612
  6. CARISOPRODOL. [Concomitant]
     Active Substance: CARISOPRODOL
     Dates: start: 20111206
  7. OXYCODONE [Concomitant]
     Active Substance: OXYCODONE
  8. CARVEDILOL. [Concomitant]
     Active Substance: CARVEDILOL
  9. FENTANYL. [Concomitant]
     Active Substance: FENTANYL
  10. ULORIC [Concomitant]
     Active Substance: FEBUXOSTAT
  11. NEXIUM [Suspect]
     Active Substance: ESOMEPRAZOLE MAGNESIUM
     Indication: GASTROOESOPHAGEAL REFLUX DISEASE
     Route: 048
     Dates: start: 199501, end: 201612
  12. PRILOSEC [Suspect]
     Active Substance: OMEPRAZOLE MAGNESIUM
     Indication: GASTROOESOPHAGEAL REFLUX DISEASE
     Route: 048
     Dates: start: 199501, end: 201612
  13. PRILOSEC OTC [Suspect]
     Active Substance: OMEPRAZOLE MAGNESIUM
     Indication: GASTROOESOPHAGEAL REFLUX DISEASE
     Route: 048
     Dates: start: 2003, end: 2016
  14. FOLIC ACID. [Concomitant]
     Active Substance: FOLIC ACID
     Dates: start: 20190319
  15. HYDROCODONE [Concomitant]
     Active Substance: HYDROCODONE
     Dates: start: 20111206
  16. SYMBICORT [Concomitant]
     Active Substance: BUDESONIDE\FORMOTEROL FUMARATE DIHYDRATE
  17. LEVOTHYROXINE. [Concomitant]
     Active Substance: LEVOTHYROXINE
  18. LIDOCAINE. [Concomitant]
     Active Substance: LIDOCAINE
  19. ALLOPURINOL. [Concomitant]
     Active Substance: ALLOPURINOL
  20. OMEGA 3 [Concomitant]
     Active Substance: OMEGA-3 FATTY ACIDS
  21. URIC ACID [Concomitant]
     Active Substance: URIC ACID
  22. ACETAMINOPHEN. [Concomitant]
     Active Substance: ACETAMINOPHEN
     Dates: start: 20140614
  23. FLOVENT [Concomitant]
     Active Substance: FLUTICASONE PROPIONATE
  24. VENTOLIN [Concomitant]
     Active Substance: ALBUTEROL SULFATE
  25. NASONEX [Concomitant]
     Active Substance: MOMETASONE FUROATE
  26. NEXIUM [Suspect]
     Active Substance: ESOMEPRAZOLE MAGNESIUM
     Indication: GASTROOESOPHAGEAL REFLUX DISEASE
     Route: 048
     Dates: start: 2001, end: 2016
  27. PRILOSEC [Suspect]
     Active Substance: OMEPRAZOLE MAGNESIUM
     Indication: GASTROOESOPHAGEAL REFLUX DISEASE
     Dosage: GENERIC
     Route: 065
     Dates: start: 20190705
  28. PREVACID [Suspect]
     Active Substance: LANSOPRAZOLE
     Indication: GASTROOESOPHAGEAL REFLUX DISEASE
     Route: 065
     Dates: start: 1995, end: 2016
  29. AMLODIPINE [Concomitant]
     Active Substance: AMLODIPINE BESYLATE
  30. PREDNISONE. [Concomitant]
     Active Substance: PREDNISONE
  31. HYDROCHLOROTHIAZIDE. [Concomitant]
     Active Substance: HYDROCHLOROTHIAZIDE
  32. PRILOSEC [Suspect]
     Active Substance: OMEPRAZOLE MAGNESIUM
     Indication: GASTROOESOPHAGEAL REFLUX DISEASE
     Route: 048
     Dates: start: 1995, end: 2016
  33. LABETALOL [Concomitant]
     Active Substance: LABETALOL\LABETALOL HYDROCHLORIDE
     Dates: start: 20190303
  34. FUROSEMIDE. [Concomitant]
     Active Substance: FUROSEMIDE
     Dates: start: 20190122
  35. HYDRALAZINE [Concomitant]
     Active Substance: HYDRALAZINE HYDROCHLORIDE
     Dates: start: 20190411
  36. FERROUS SULFATE. [Concomitant]
     Active Substance: FERROUS SULFATE
  37. PRILOSEC [Suspect]
     Active Substance: OMEPRAZOLE MAGNESIUM
     Indication: GASTROOESOPHAGEAL REFLUX DISEASE
     Dosage: GENERIC
     Route: 065
     Dates: start: 20180130
  38. IBUPROFEN. [Concomitant]
     Active Substance: IBUPROFEN
     Dates: start: 20100521
  39. OXYCONTIN [Concomitant]
     Active Substance: OXYCODONE HYDROCHLORIDE
  40. SODIUM CHLORIDE. [Concomitant]
     Active Substance: SODIUM CHLORIDE
  41. CEFAZOLIN [Concomitant]
     Active Substance: CEFAZOLIN
  42. DIAZEPAM. [Concomitant]
     Active Substance: DIAZEPAM
  43. PHENOBARBITAL. [Concomitant]
     Active Substance: PHENOBARBITAL
  44. ROSUVASTATIN. [Concomitant]
     Active Substance: ROSUVASTATIN
     Dates: start: 20190117
  45. POTASSIUM CHLORIDE. [Concomitant]
     Active Substance: POTASSIUM CHLORIDE
  46. MONTELUKAST [Concomitant]
     Active Substance: MONTELUKAST SODIUM
  47. BENAZEPRIL [Concomitant]
     Active Substance: BENAZEPRIL HYDROCHLORIDE
  48. PHENYTOIN. [Concomitant]
     Active Substance: PHENYTOIN

REACTIONS (7)
  - Hyperkalaemia [Unknown]
  - Renal failure [Unknown]
  - Acute kidney injury [Not Recovered/Not Resolved]
  - Nephrogenic anaemia [Unknown]
  - Chronic kidney disease [Not Recovered/Not Resolved]
  - End stage renal disease [Unknown]
  - Tubulointerstitial nephritis [Unknown]

NARRATIVE: CASE EVENT DATE: 2010
